FAERS Safety Report 12964405 (Version 2)
Quarter: 2016Q4

REPORT INFORMATION
  Report Type: Spontaneous
  Country: JP (occurrence: JP)
  Receive Date: 20161122
  Receipt Date: 20161222
  Transmission Date: 20170207
  Serious: Yes (Death, Other)
  Sender: FDA-Public Use
  Company Number: JP-ELI_LILLY_AND_COMPANY-JP201611004767

PATIENT
  Age: 63 Year
  Sex: Female

DRUGS (2)
  1. CYRAMZA [Suspect]
     Active Substance: RAMUCIRUMAB
     Indication: ADENOCARCINOMA GASTRIC
     Dosage: UNK, OTHER
     Route: 042
     Dates: start: 20160806
  2. PACLITAXEL. [Concomitant]
     Active Substance: PACLITAXEL
     Indication: ADENOCARCINOMA GASTRIC
     Dosage: UNK, WEEKLY (1/W)
     Route: 042
     Dates: start: 20160701

REACTIONS (3)
  - Metastases to peritoneum [Fatal]
  - Pneumonia aspiration [Unknown]
  - Subileus [Unknown]

NARRATIVE: CASE EVENT DATE: 2016
